FAERS Safety Report 8961499 (Version 1)
Quarter: 2012Q4

REPORT INFORMATION
  Report Type: 
  Country: US (occurrence: US)
  Receive Date: 20121212
  Receipt Date: 20121212
  Transmission Date: 20130627
  Serious: No
  Sender: FDA-Public Use
  Company Number: US-MYLANLABS-2012S1019659

PATIENT
  Sex: Male

DRUGS (3)
  1. ATORVASTATIN [Suspect]
     Indication: BLOOD CHOLESTEROL
     Route: 048
     Dates: start: 201209
  2. ANTITHROMBOTIC AGENTS [Concomitant]
  3. NORVASC [Concomitant]
     Indication: BLOOD PRESSURE INCREASED

REACTIONS (1)
  - Dry mouth [Not Recovered/Not Resolved]
